FAERS Safety Report 20986014 (Version 1)
Quarter: 2022Q2

REPORT INFORMATION
  Report Type: Report from Study
  Country: TR (occurrence: TR)
  Receive Date: 20220621
  Receipt Date: 20220621
  Transmission Date: 20220721
  Serious: Yes (Hospitalization, Other)
  Sender: FDA-Public Use
  Company Number: TR-CELGENE-TUR-20220207049

PATIENT
  Age: 46 Year
  Sex: Male
  Weight: 76 kg

DRUGS (11)
  1. AZACITIDINE [Suspect]
     Active Substance: AZACITIDINE
     Indication: Acute myeloid leukaemia
     Route: 048
     Dates: start: 20211216, end: 20220213
  2. AZACITIDINE [Suspect]
     Active Substance: AZACITIDINE
     Route: 048
     Dates: start: 20220328
  3. VENETOCLAX [Suspect]
     Active Substance: VENETOCLAX
     Indication: Acute myeloid leukaemia
     Route: 048
     Dates: start: 20211216, end: 20220216
  4. VENETOCLAX [Suspect]
     Active Substance: VENETOCLAX
     Dosage: 21 DAYS ON, 7 DAYS OFF
     Route: 048
     Dates: start: 20220328
  5. LEVOTHYROXINE SODIUM [Concomitant]
     Active Substance: LEVOTHYROXINE SODIUM
     Indication: Hypothyroidism
     Dosage: FREQUENCY TEXT: NOT PROVIDED
     Route: 048
     Dates: start: 20210507
  6. PANTO [Concomitant]
     Indication: Gastrooesophageal reflux disease
     Dosage: 40 MILLIGRAM
     Route: 048
     Dates: start: 2015
  7. FILGRASTIM [Concomitant]
     Active Substance: FILGRASTIM
     Indication: Febrile neutropenia
     Dosage: 30 MICROGRAM
     Route: 058
     Dates: start: 20220110, end: 20220118
  8. FILGRASTIM [Concomitant]
     Active Substance: FILGRASTIM
     Indication: Neutrophil count decreased
     Dosage: 48 MICROGRAM
     Route: 058
     Dates: start: 20220217, end: 20220224
  9. FILGRASTIM [Concomitant]
     Active Substance: FILGRASTIM
     Dosage: 48 MICROGRAM
     Route: 058
     Dates: start: 20220224, end: 20220224
  10. FILGRASTIM [Concomitant]
     Active Substance: FILGRASTIM
     Dosage: 30 MICROGRAM
     Route: 058
     Dates: start: 20220228, end: 20220228
  11. TANTUM VERDE SPRAY [Concomitant]
     Indication: Aphthous ulcer
     Route: 048
     Dates: start: 20220112, end: 20220118

REACTIONS (1)
  - Colitis [Recovered/Resolved]

NARRATIVE: CASE EVENT DATE: 20220218
